FAERS Safety Report 6064578-7 (Version None)
Quarter: 2009Q1

REPORT INFORMATION
  Report Type: 
  Country: None (occurrence: None)
  Receive Date: 20090204
  Receipt Date: 20090202
  Transmission Date: 20090719
  Serious: Yes (Life-Threatening, Hospitalization)
  Sender: FDA-Public Use
  Company Number: B0553203A

PATIENT
  Age: 20 Year
  Sex: Female
  Weight: 65 kg

DRUGS (2)
  1. CLAVAMOX [Suspect]
     Dosage: 1000MG PER DAY
     Route: 048
     Dates: start: 20081130, end: 20081130
  2. ALPHA AMYLASE [Concomitant]
     Dosage: 9000IU PER DAY
     Route: 048
     Dates: start: 20081130, end: 20081130

REACTIONS (3)
  - DYSPNOEA [None]
  - FACE OEDEMA [None]
  - WHEEZING [None]
